FAERS Safety Report 4462086-8 (Version None)
Quarter: 2004Q3

REPORT INFORMATION
  Report Type: 
  Country: None (occurrence: None)
  Receive Date: 20040927
  Receipt Date: 20040927
  Transmission Date: 20050211
  Serious: No
  Sender: FDA-Public Use
  Company Number: None

PATIENT
  Age: 63 Year
  Sex: Female

DRUGS (2)
  1. REMERON [Suspect]
     Indication: MAJOR DEPRESSION
     Dosage: ONCE PO QHS
  2. MIRTAZAPINE [Suspect]
     Dosage: ONCE PO QHS
     Route: 048

REACTIONS (3)
  - DRUG INTOLERANCE [None]
  - MOUTH ULCERATION [None]
  - VOMITING [None]
